FAERS Safety Report 10163013 (Version 2)
Quarter: 2014Q2

REPORT INFORMATION
  Report Type: Spontaneous
  Country: US (occurrence: US)
  Receive Date: 20140509
  Receipt Date: 20140509
  Transmission Date: 20141212
  Serious: Yes (Other)
  Sender: FDA-Public Use
  Company Number: PHHY2014US054442

PATIENT
  Age: 67 Year
  Sex: Male

DRUGS (3)
  1. LIORESAL INTRATECAL [Suspect]
     Indication: MUSCLE SPASTICITY
     Dosage: (2128/D)
     Route: 037
  2. LISINOPRIL [Suspect]
     Dosage: UNK UKN, UNK
     Route: 048
  3. LEXAPRO [Suspect]
     Route: 048

REACTIONS (1)
  - Muscle spasticity [Unknown]
